FAERS Safety Report 6276313-8 (Version None)
Quarter: 2009Q3

REPORT INFORMATION
  Report Type: 
  Country: None (occurrence: None)
  Receive Date: 20090722
  Receipt Date: 20090715
  Transmission Date: 20100115
  Serious: Yes (Other)
  Sender: FDA-Public Use
  Company Number: BR-ROCHE-638265

PATIENT
  Sex: Female
  Weight: 61 kg

DRUGS (4)
  1. RIVOTRIL [Suspect]
     Indication: DEPRESSION
     Dosage: OTHER INDICATIONS: FEAR, INSOMNIA, IRRITABILITY, MEMORY LOSS, FAINT
     Route: 048
     Dates: start: 20000101
  2. FENERGAN [Concomitant]
     Indication: AMNESIA
     Dosage: OTHER INDICATIONS: IRRITABILITY AND DOUBLE PERSONALITY
     Route: 048
     Dates: start: 20081001
  3. RISPERIDONE [Concomitant]
     Indication: AMNESIA
     Dosage: OTHER INDICATIONS: IRRITABILITY AND DOUBLE PERSONALITY
     Route: 048
     Dates: start: 20040101
  4. ANAFRANIL [Concomitant]
     Indication: AMNESIA
     Dosage: OTHER INDICATIONS: IRRITABILITY AND DOUBLE PERSONALITY
     Route: 048
     Dates: start: 20081001

REACTIONS (4)
  - ABDOMINAL PAIN [None]
  - HEADACHE [None]
  - NAUSEA [None]
  - SYNCOPE [None]
